FAERS Safety Report 10095636 (Version 1)
Quarter: 2014Q2

REPORT INFORMATION
  Report Type: Spontaneous
  Country: US (occurrence: None)
  Receive Date: 20140421
  Receipt Date: 20140421
  Transmission Date: 20141212
  Serious: Yes (Other)
  Sender: FDA-Public Use
  Company Number: None

PATIENT
  Age: 46 Year
  Sex: Female

DRUGS (1)
  1. CIMZIA [Suspect]
     Indication: PSORIATIC ARTHROPATHY
     Dosage: 200 MG EVERY 2 WEEKS SUBCUTANEOUS
     Route: 058
     Dates: start: 20131206, end: 20140418

REACTIONS (1)
  - Psoriasis [None]
